FAERS Safety Report 4645468-0 (Version None)
Quarter: 2005Q2

REPORT INFORMATION
  Report Type: 
  Country: None (occurrence: None)
  Receive Date: 20050426
  Receipt Date: 20050418
  Transmission Date: 20051028
  Serious: Yes (Death)
  Sender: FDA-Public Use
  Company Number: GB-MERCK-0504GBR00104

PATIENT
  Age: 48 Year
  Sex: Male

DRUGS (4)
  1. MAXALT [Suspect]
     Indication: MIGRAINE
     Route: 048
     Dates: start: 20050209, end: 20050209
  2. ATENOLOL [Suspect]
     Indication: MIGRAINE PROPHYLAXIS
     Route: 048
     Dates: start: 20040721
  3. DICLOFENAC [Suspect]
     Indication: EPICONDYLITIS
     Route: 065
     Dates: start: 20050204
  4. ACETAMINOPHEN AND DOMPERIDONE MALEATE [Suspect]
     Indication: MIGRAINE
     Route: 048
     Dates: start: 20040923, end: 20050210

REACTIONS (4)
  - BLOOD PRESSURE SYSTOLIC INCREASED [None]
  - CORONARY ARTERY THROMBOSIS [None]
  - HAEMOGLOBIN DECREASED [None]
  - MIGRAINE [None]
